FAERS Safety Report 21130499 (Version 2)
Quarter: 2024Q2

REPORT INFORMATION
  Report Type: Spontaneous
  Country: US (occurrence: US)
  Receive Date: 20220726
  Receipt Date: 20240520
  Transmission Date: 20240716
  Serious: No
  Sender: FDA-Public Use
  Company Number: US-Blueprint Medicines Corporation-280

PATIENT
  Age: 62 Year
  Sex: Male

DRUGS (2)
  1. AYVAKIT [Suspect]
     Active Substance: AVAPRITINIB
     Indication: Haematopoietic neoplasm
     Route: 048
     Dates: start: 20210707
  2. AYVAKIT [Suspect]
     Active Substance: AVAPRITINIB
     Indication: Systemic mastocytosis
     Route: 065

REACTIONS (4)
  - Headache [Recovered/Resolved]
  - Arthritis [Unknown]
  - Migraine [Unknown]
  - Pancreatic disorder [Unknown]

NARRATIVE: CASE EVENT DATE: 20231001
